FAERS Safety Report 17994018 (Version 5)
Quarter: 2020Q3

REPORT INFORMATION
  Report Type: Spontaneous
  Country: DE (occurrence: DE)
  Receive Date: 20200708
  Receipt Date: 20200914
  Transmission Date: 20201103
  Serious: Yes (Life-Threatening, Other)
  Sender: FDA-Public Use
  Company Number: DE-MYLANLABS-2020M1062481

PATIENT
  Age: 30 Year
  Sex: Male

DRUGS (16)
  1. VALPROIC ACID. [Suspect]
     Active Substance: VALPROIC ACID
     Indication: SEIZURE
     Dosage: DAILY DOSE GREATER THAN 2000 MG DAILY
     Route: 065
  2. VALPROIC ACID. [Interacting]
     Active Substance: VALPROIC ACID
     Indication: PARTIAL SEIZURES
     Dosage: 200 MILLIGRAM, QD
     Route: 065
  3. PERAMPANEL [Concomitant]
     Active Substance: PERAMPANEL
     Indication: EPILEPSY
     Dosage: FOLLOW?UP DAILY DOSE: 8 MG
  4. VALPROIC ACID. [Interacting]
     Active Substance: VALPROIC ACID
     Dosage: UNK(UNK, INITIAL DOSE UNKNOWN)
     Route: 065
  5. VALPROIC ACID. [Interacting]
     Active Substance: VALPROIC ACID
     Indication: EPILEPSY
     Dosage: 2000 MILLIGRAM, QD
     Route: 065
  6. RIVAROXABAN [Interacting]
     Active Substance: RIVAROXABAN
     Indication: EPILEPSY
     Dosage: 20 MILLIGRAM
     Route: 048
  7. RIVAROXABAN [Interacting]
     Active Substance: RIVAROXABAN
     Indication: ANTICOAGULANT THERAPY
     Dosage: 15 MILLIGRAM, QD
     Route: 065
  8. XARELTO [Suspect]
     Active Substance: RIVAROXABAN
     Dosage: 20 MILLIGRAM
  9. LAMOTRIGINE. [Concomitant]
     Active Substance: LAMOTRIGINE
     Indication: PARTIAL SEIZURES
     Dosage: 400 MILLIGRAM, QD(DAILY DOSE 400 MG)
     Route: 065
  10. LAMOTRIGINE. [Concomitant]
     Active Substance: LAMOTRIGINE
     Indication: SEIZURE
     Dosage: 2000 MILLIGRAM, QD
     Route: 065
  11. PIPAMPERONE [Concomitant]
     Active Substance: PIPAMPERONE
     Indication: EPILEPSY
     Dosage: 20 MILLIGRAM, QD,FOLLOW?UP DAILY DOSE 20 MG
  12. RIVAROXABAN [Interacting]
     Active Substance: RIVAROXABAN
     Indication: DEEP VEIN THROMBOSIS
     Dosage: 15 MILLIGRAM, QD
     Route: 048
  13. RIVAROXABAN [Interacting]
     Active Substance: RIVAROXABAN
     Indication: DEEP VEIN THROMBOSIS
     Dosage: 20 MILLIGRAM, QD
     Route: 065
  14. XARELTO [Suspect]
     Active Substance: RIVAROXABAN
     Indication: DEEP VEIN THROMBOSIS
     Dosage: 15 MILLIGRAM, QD
  15. LAMOTRIGINE. [Concomitant]
     Active Substance: LAMOTRIGINE
     Indication: EPILEPSY
     Dosage: 200 MILLIGRAM, QD(DAILY DOSE 200 MG)
     Route: 065
  16. LAMOTRIGINE. [Concomitant]
     Active Substance: LAMOTRIGINE
     Dosage: UNK

REACTIONS (7)
  - Off label use [Unknown]
  - Drug interaction [Recovering/Resolving]
  - Deep vein thrombosis [Unknown]
  - Drug ineffective [Unknown]
  - Hyperhomocysteinaemia [Unknown]
  - Inhibitory drug interaction [Unknown]
  - Anticoagulation drug level decreased [Recovered/Resolved]
